FAERS Safety Report 5574245-1 (Version None)
Quarter: 2007Q4

REPORT INFORMATION
  Report Type: 
  Country: None (occurrence: None)
  Receive Date: 20071221
  Receipt Date: 20071101
  Transmission Date: 20080405
  Serious: Yes (Hospitalization)
  Sender: FDA-Public Use
  Company Number: LSNEDEKER11012007

PATIENT
  Sex: Female

DRUGS (1)
  1. SOLUTIONS AGELESS RESULTS RENEWING DAY CREAM SPF15 [Suspect]

REACTIONS (2)
  - EYE IRRITATION [None]
  - VISION BLURRED [None]
